FAERS Safety Report 21596029 (Version 1)
Quarter: 2022Q4

REPORT INFORMATION
  Report Type: Spontaneous
  Country: DE (occurrence: DE)
  Receive Date: 20221115
  Receipt Date: 20221115
  Transmission Date: 20230112
  Serious: Yes (Hospitalization)
  Sender: FDA-Public Use
  Company Number: None

PATIENT
  Age: 74 Year
  Sex: Male
  Weight: 92 kg

DRUGS (17)
  1. APIXABAN [Suspect]
     Active Substance: APIXABAN
     Indication: Product used for unknown indication
     Dosage: 2.5 MG, 1-0-1-0, TABLETS
  2. CLOPIDOGREL [Suspect]
     Active Substance: CLOPIDOGREL BISULFATE
     Indication: Product used for unknown indication
     Dosage: 75 MG, 1-0-0-0, TABLETS
  3. FEBUXOSTAT [Suspect]
     Active Substance: FEBUXOSTAT
     Indication: Product used for unknown indication
     Dosage: 80MG, 1-0-0-0, TABLETS
  4. METFORMIN [Suspect]
     Active Substance: METFORMIN HYDROCHLORIDE
     Indication: Product used for unknown indication
     Dosage: 500MG, 0-0-1-0, TABLET
  5. BISOPROLOL [Suspect]
     Active Substance: BISOPROLOL
     Indication: Product used for unknown indication
     Dosage: 5 MG, 0.5-0-0.5-0, TABLETS
  6. TORSEMIDE [Suspect]
     Active Substance: TORSEMIDE
     Indication: Product used for unknown indication
     Dosage: 50MG, 1-0-0-0, TABLETS
  7. ZOPICLONE [Concomitant]
     Active Substance: ZOPICLONE
     Dosage: 7.5 MG, AS REQUIRED, TABLETS
  8. PANTOPRAZOLE [Concomitant]
     Active Substance: PANTOPRAZOLE
     Dosage: 40 MG, AS REQUIRED, TABLETS
  9. LEVOTHYROXINE SODIUM [Concomitant]
     Active Substance: LEVOTHYROXINE SODIUM
     Dosage: 150 MICROGRAM, 1-0-0-0, TABLETS
  10. BUDESONIDE [Concomitant]
     Active Substance: BUDESONIDE
     Dosage: 200 MICROGRAM, 1-0-1-0, CAPSULES
  11. METAMIZOLE [Concomitant]
     Active Substance: METAMIZOLE
     Dosage: 500MG, 1-1-1-0, TABLETS
  12. TIOTROPIUM BROMIDE [Concomitant]
     Active Substance: TIOTROPIUM BROMIDE
     Dosage: 18 MICROGRAM, 1-0-0-0, CAPSULE
  13. FORMOTEROL [Concomitant]
     Active Substance: FORMOTEROL
     Dosage: 12 MICROGRAM, 1-0-1-0, CAPSULE
  14. TAMSULOSIN [Concomitant]
     Active Substance: TAMSULOSIN
     Dosage: 0.4 MG, 0-1-0-0, PROLONGED-RELEASE CAPSULES
  15. LIRAGLUTIDE [Concomitant]
     Active Substance: LIRAGLUTIDE
     Dosage: 18MG / 3ML, 1-0-0-0, PRE-FILLED SYRINGES
  16. MAGNESIUM [Concomitant]
     Active Substance: MAGNESIUM
     Dosage: 243 MG, 0-0-1-0, EFFERVESCENT TABLETS
  17. ALBUTEROL [Concomitant]
     Active Substance: ALBUTEROL
     Dosage: 1.25 MG / 2.5ML, AS REQUIRED, AMPOULES

REACTIONS (4)
  - Product prescribing error [Unknown]
  - Constipation [Unknown]
  - Oedema peripheral [Unknown]
  - Paraesthesia [Unknown]
